FAERS Safety Report 9641602 (Version 1)
Quarter: 2013Q4

REPORT INFORMATION
  Report Type: Spontaneous
  Country: US (occurrence: US)
  Receive Date: 20131023
  Receipt Date: 20131023
  Transmission Date: 20140711
  Serious: Yes (Other)
  Sender: FDA-Public Use
  Company Number: US-GLAXOSMITHKLINE-A1046337A

PATIENT
  Age: 81 Year
  Sex: Male

DRUGS (8)
  1. ADVAIR [Suspect]
     Indication: ASTHMA
     Dosage: 1PUFF PER DAY
  2. QUINAPRIL [Concomitant]
  3. NEXIUM [Concomitant]
  4. HYDROCHLOROTHIAZID [Concomitant]
  5. SERTRALINE [Concomitant]
  6. ESTRADIOL [Concomitant]
  7. BYSTOLIC [Concomitant]
  8. PRAVASTATIN [Concomitant]

REACTIONS (4)
  - Candida infection [Not Recovered/Not Resolved]
  - Dyspnoea [Not Recovered/Not Resolved]
  - Oropharyngeal pain [Not Recovered/Not Resolved]
  - Drug administration error [Recovered/Resolved]
